FAERS Safety Report 4691636-1 (Version None)
Quarter: 2005Q2

REPORT INFORMATION
  Report Type: 
  Country: None (occurrence: None)
  Receive Date: 20050616
  Receipt Date: 20050606
  Transmission Date: 20051028
  Serious: Yes (Death, Life-Threatening)
  Sender: FDA-Public Use
  Company Number: US-JNJFOC-20050402918

PATIENT
  Sex: Male

DRUGS (9)
  1. REMICADE [Suspect]
     Indication: RHEUMATOID ARTHRITIS
     Route: 042
  2. ENBREL [Suspect]
     Indication: RHEUMATOID ARTHRITIS
  3. METHOTREXATE [Concomitant]
     Indication: RHEUMATOID ARTHRITIS
  4. ATROVENT [Concomitant]
  5. ALBUTEROL [Concomitant]
  6. CARTIA XT [Concomitant]
  7. LISINOPRIL [Concomitant]
  8. ADVAIR [Concomitant]
  9. ADVAIR [Concomitant]

REACTIONS (1)
  - LUNG ADENOCARCINOMA METASTATIC [None]
